FAERS Safety Report 5388842-X (Version None)
Quarter: 2007Q3

REPORT INFORMATION
  Report Type: 
  Country: None (occurrence: None)
  Receive Date: 20070716
  Receipt Date: 20070707
  Transmission Date: 20080115
  Serious: Yes (Hospitalization)
  Sender: FDA-Public Use
  Company Number: DE-SHR-DE-2007-025264

PATIENT
  Age: 33 Year
  Sex: Female

DRUGS (2)
  1. YASMIN 20 (DRSP+EE (SH T 186 D)) [Suspect]
     Indication: ORAL CONTRACEPTION
     Dosage: 1 TAB(S), 1X/DAY (GROUP A)
     Route: 048
     Dates: start: 20060403, end: 20061031
  2. ACETAMINOPHEN [Concomitant]
     Dosage: UNK, AS REQ'D
     Route: 048
     Dates: start: 19900101

REACTIONS (1)
  - UTERINE LEIOMYOMA [None]
